FAERS Safety Report 8095876-3 (Version None)
Quarter: 2012Q1

REPORT INFORMATION
  Report Type: 
  Country: None (occurrence: None)
  Receive Date: 20120129
  Receipt Date: 20111214
  Transmission Date: 20120608
  Serious: No
  Sender: FDA-Public Use
  Company Number: US-ABBOTT-11P-163-0883382-00

PATIENT
  Age: 64 Year
  Sex: Male

DRUGS (5)
  1. SIMVASTATIN [Concomitant]
     Indication: BLOOD CHOLESTEROL
     Dosage: DAILY
  2. ATENOLOL [Concomitant]
     Indication: HYPERTENSION
     Dosage: 50MG EVERY MORNING, 25MG EVERY EVENING
  3. LOSARTAN POTASSIUM [Concomitant]
     Indication: BLOOD PRESSURE
     Dosage: DAILY
  4. OMEPRAZOLE [Concomitant]
     Indication: PRODUCT USED FOR UNKNOWN INDICATION
     Dosage: DAILY
  5. HUMIRA [Suspect]
     Indication: PSORIASIS

REACTIONS (5)
  - CHEST INJURY [None]
  - SINUSITIS [None]
  - ABSCESS [None]
  - PNEUMONIA [None]
  - ERYTHEMA [None]
